FAERS Safety Report 22367735 (Version 1)
Quarter: 2023Q2

REPORT INFORMATION
  Report Type: Spontaneous
  Country: US (occurrence: None)
  Receive Date: 20230525
  Receipt Date: 20230525
  Transmission Date: 20230722
  Serious: No
  Sender: FDA-Public Use
  Company Number: None

PATIENT
  Age: 46 Year
  Sex: Female

DRUGS (1)
  1. GLATIRAMER ACETATE [Suspect]
     Active Substance: GLATIRAMER ACETATE
     Dosage: OTHER FREQUENCY : OTHER;?
     Route: 058
     Dates: start: 202209

REACTIONS (7)
  - Dyspnoea [None]
  - Pain in extremity [None]
  - Neck pain [None]
  - Back pain [None]
  - Injection related reaction [None]
  - Musculoskeletal pain [None]
  - Movement disorder [None]

NARRATIVE: CASE EVENT DATE: 20230524
